FAERS Safety Report 21027249 (Version 4)
Quarter: 2025Q2

REPORT INFORMATION
  Report Type: Spontaneous
  Country: US (occurrence: US)
  Receive Date: 20220630
  Receipt Date: 20250528
  Transmission Date: 20250717
  Serious: No
  Sender: PFIZER
  Company Number: US-PFIZER INC-PV202200011755

PATIENT
  Age: 78 Year
  Sex: Female

DRUGS (3)
  1. IBRANCE [Suspect]
     Active Substance: PALBOCICLIB
     Dates: start: 20220521
  2. IBRANCE [Suspect]
     Active Substance: PALBOCICLIB
     Dates: end: 2024
  3. IBRANCE [Suspect]
     Active Substance: PALBOCICLIB

REACTIONS (4)
  - Flatulence [Unknown]
  - Spinal pain [Unknown]
  - Dyspepsia [Unknown]
  - Fatigue [Unknown]

NARRATIVE: CASE EVENT DATE: 20220101
